FAERS Safety Report 14456058 (Version 1)
Quarter: 2018Q1

REPORT INFORMATION
  Report Type: Report from Study
  Country: None (occurrence: US)
  Receive Date: 20180130
  Receipt Date: 20180130
  Transmission Date: 20180509
  Serious: Yes (Other)
  Sender: FDA-Public Use
  Company Number: US-ABBVIE-18K-163-2235763-00

PATIENT
  Age: 44 Year
  Sex: Male

DRUGS (1)
  1. HUMIRA [Suspect]
     Active Substance: ADALIMUMAB
     Indication: CROHN^S DISEASE
     Route: 058

REACTIONS (5)
  - Loss of consciousness [Unknown]
  - Sinus disorder [Unknown]
  - Sinus congestion [Unknown]
  - Loss of consciousness [Recovered/Resolved]
  - Intestinal polyp [Unknown]

NARRATIVE: CASE EVENT DATE: 201712
